FAERS Safety Report 12135253 (Version 3)
Quarter: 2016Q1

REPORT INFORMATION
  Report Type: Report from Study
  Country: US (occurrence: US)
  Receive Date: 20160301
  Receipt Date: 20160303
  Transmission Date: 20160526
  Serious: Yes (Hospitalization)
  Sender: FDA-Public Use
  Company Number: US-ABBVIE-16P-163-1566601-00

PATIENT
  Age: 27 Year
  Sex: Female

DRUGS (2)
  1. DEPAKOTE ER [Suspect]
     Active Substance: DIVALPROEX SODIUM
     Indication: EPILEPSY
     Route: 065
     Dates: start: 2002
  2. CRYSELLE [Concomitant]
     Active Substance: ETHINYL ESTRADIOL\NORGESTREL
     Indication: CONTRACEPTION

REACTIONS (6)
  - Pruritus [Recovered/Resolved]
  - Infectious mononucleosis [Recovered/Resolved]
  - Hot flush [Recovered/Resolved]
  - Malaise [Unknown]
  - Blood bilirubin increased [Recovered/Resolved]
  - Chromaturia [Recovered/Resolved]

NARRATIVE: CASE EVENT DATE: 201511
